FAERS Safety Report 6420093-X (Version None)
Quarter: 2009Q4

REPORT INFORMATION
  Report Type: 
  Country: None (occurrence: None)
  Receive Date: 20091029
  Receipt Date: 20091018
  Transmission Date: 20100525
  Serious: Yes (Other)
  Sender: FDA-Public Use
  Company Number: US-PFIZER INC-2009285191

PATIENT
  Sex: Female
  Weight: 74.842 kg

DRUGS (8)
  1. CHANTIX [Suspect]
     Indication: SMOKING CESSATION THERAPY
     Route: 048
     Dates: start: 20091013, end: 20091013
  2. CELEXA [Suspect]
     Indication: DEPRESSION
     Dates: start: 20091013
  3. CELEXA [Suspect]
     Route: 048
     Dates: end: 20091013
  4. WELLBUTRIN [Concomitant]
     Indication: DEPRESSION
  5. AMBIEN [Concomitant]
     Route: 048
  6. LYRICA [Concomitant]
     Dosage: FREQUENCY: 2X/DAY,
     Route: 048
  7. REQUIP [Concomitant]
     Indication: RESTLESS LEGS SYNDROME
     Route: 048
  8. HUMIRA [Concomitant]
     Indication: CROHN'S DISEASE
     Dosage: FREQUENCY: ONCE EVERY 2 WEEKS,
     Route: 058

REACTIONS (1)
  - VENTRICULAR EXTRASYSTOLES [None]
